FAERS Safety Report 20919054 (Version 1)
Quarter: 2022Q2

REPORT INFORMATION
  Report Type: Spontaneous
  Country: US (occurrence: US)
  Receive Date: 20220606
  Receipt Date: 20220606
  Transmission Date: 20220721
  Serious: No
  Sender: FDA-Public Use
  Company Number: US-BRISTOL-MYERS SQUIBB COMPANY-2022-037627

PATIENT
  Age: 83 Year
  Sex: Female

DRUGS (1)
  1. REVLIMID [Suspect]
     Active Substance: LENALIDOMIDE
     Indication: Plasma cell myeloma in remission
     Dosage: FREQUENCY-TAKE 1 CAPSULE BY MOUTH DAILY FOR 21 DAYS OUT OF 28 DAY CYCLE.
     Route: 048
     Dates: start: 20200422

REACTIONS (2)
  - Arthralgia [Unknown]
  - Product dose omission issue [Unknown]
